FAERS Safety Report 8405745-4 (Version None)
Quarter: 2012Q1

REPORT INFORMATION
  Report Type: 
  Country: None (occurrence: None)
  Receive Date: 20120323
  Receipt Date: 20111214
  Transmission Date: 20120608
  Serious: Yes (Other)
  Sender: FDA-Public Use
  Company Number: 163-21880-11052046

PATIENT
  Age: 80 Year
  Sex: Male

DRUGS (12)
  1. SINEMET [Concomitant]
  2. FLOMAX [Concomitant]
  3. REVLIMID [Suspect]
     Indication: MULTIPLE MYELOMA
     Dosage: 10 MG, DAILY, DAYS 1-21, STOP FOR 7, Q 28 DAYS, PO, 10 MG, DAILY, X21 DAYS, PO
     Route: 048
     Dates: start: 20110427, end: 20110511
  4. REVLIMID [Suspect]
     Indication: MULTIPLE MYELOMA
     Dosage: 10 MG, DAILY, DAYS 1-21, STOP FOR 7, Q 28 DAYS, PO, 10 MG, DAILY, X21 DAYS, PO
     Route: 048
     Dates: start: 20110609
  5. LASIX [Concomitant]
  6. PROCRIT [Concomitant]
  7. BLOOD (BLOOD AND RELATED PRODUCTS) [Concomitant]
  8. COREG [Concomitant]
  9. METOPROLOL TARTRATE [Concomitant]
  10. MULTAQ [Concomitant]
  11. PROTONIX [Concomitant]
  12. DEXAMETHASONE [Suspect]
     Indication: MULTIPLE MYELOMA
     Dosage: 40 MG, X4D Q28D
     Dates: start: 20070206, end: 20110511

REACTIONS (5)
  - DISORIENTATION [None]
  - CHROMATURIA [None]
  - CONFUSIONAL STATE [None]
  - RED BLOOD CELL COUNT DECREASED [None]
  - HALLUCINATION [None]
